FAERS Safety Report 14957178 (Version 2)
Quarter: 2018Q3

REPORT INFORMATION
  Report Type: Report from Study
  Country: PL (occurrence: PL)
  Receive Date: 20180531
  Receipt Date: 20180904
  Transmission Date: 20181010
  Serious: Yes (Other)
  Sender: FDA-Public Use
  Company Number: PL-CHIESI USA INC.-PL-2018CHI000132

PATIENT
  Age: 0 Day
  Sex: Female
  Weight: 1.92 kg

DRUGS (3)
  1. PEYONA [Concomitant]
     Indication: INFANTILE APNOEA
     Dosage: 38 MG, QD
     Route: 042
     Dates: start: 20180515, end: 20180611
  2. AMPICILLINUM                       /00000501/ [Concomitant]
     Indication: INFECTION
     Dosage: 190 MG, QD
     Route: 042
     Dates: start: 20180515, end: 20180516
  3. CUROSURF [Suspect]
     Active Substance: PORACTANT ALFA
     Indication: NEONATAL RESPIRATORY DISTRESS SYNDROME
     Dosage: 4.5 ML, SINGLE
     Route: 039
     Dates: start: 20180515, end: 20180515

REACTIONS (1)
  - Neonatal hypoxia [Recovered/Resolved]

NARRATIVE: CASE EVENT DATE: 20180515
